FAERS Safety Report 19662094 (Version 5)
Quarter: 2021Q4

REPORT INFORMATION
  Report Type: Report from Study
  Country: US (occurrence: US)
  Receive Date: 20210805
  Receipt Date: 20211217
  Transmission Date: 20220303
  Serious: No
  Sender: FDA-Public Use
  Company Number: NVSC2021US168583

PATIENT
  Age: 30 Year
  Sex: Male

DRUGS (2)
  1. KESIMPTA [Suspect]
     Active Substance: OFATUMUMAB
     Indication: Multiple sclerosis
     Dosage: 20 MG, QMO BENEATH THE SKIN VIA INJECTION
     Route: 058
     Dates: start: 20210703
  2. KESIMPTA [Suspect]
     Active Substance: OFATUMUMAB
     Dosage: 20 UNK BENEATH THE SKIN
     Route: 058
     Dates: start: 20211201

REACTIONS (9)
  - Influenza like illness [Recovered/Resolved]
  - Tinnitus [Recovered/Resolved]
  - Retching [Recovered/Resolved]
  - Clumsiness [Not Recovered/Not Resolved]
  - Foot fracture [Not Recovered/Not Resolved]
  - Cough [Not Recovered/Not Resolved]
  - Oropharyngeal pain [Unknown]
  - Nausea [Recovered/Resolved]
  - Pyrexia [Recovered/Resolved]

NARRATIVE: CASE EVENT DATE: 20210703
